FAERS Safety Report 5818630-9 (Version None)
Quarter: 2008Q3

REPORT INFORMATION
  Report Type: 
  Country: None (occurrence: None)
  Receive Date: 20080723
  Receipt Date: 20080716
  Transmission Date: 20090109
  Serious: Yes (Hospitalization, Other)
  Sender: FDA-Public Use
  Company Number: US-ELI_LILLY_AND_COMPANY-US200807003286

PATIENT
  Sex: Female
  Weight: 146.49 kg

DRUGS (6)
  1. BYETTA [Suspect]
     Indication: TYPE 2 DIABETES MELLITUS
     Dosage: 5 UG, 2/D
     Route: 058
     Dates: start: 20080301, end: 20080401
  2. BYETTA [Suspect]
     Dosage: 10 UG, 2/D
     Route: 058
     Dates: start: 20080401, end: 20080503
  3. ULTRAM [Concomitant]
     Indication: OSTEOARTHRITIS
     Dosage: 100 MG, EACH MORNING
     Route: 048
  4. NEURONTIN [Concomitant]
     Indication: WEGENER'S GRANULOMATOSIS
     Dosage: 300 MG, DAILY (1/D)
     Route: 048
     Dates: start: 20010101, end: 20080504
  5. OXYBUTYNIN [Concomitant]
     Indication: URINARY INCONTINENCE
     Dosage: 15 MG, DAILY (1/D)
     Route: 048
     Dates: end: 20080504
  6. VITAMIN B-12 [Concomitant]
     Dosage: UNK, DAILY (1/D)
     Route: 048

REACTIONS (2)
  - ABDOMINAL PAIN [None]
  - PANCREATITIS [None]
